FAERS Safety Report 12647816 (Version 1)
Quarter: 2016Q3

REPORT INFORMATION
  Report Type: Spontaneous
  Country: US (occurrence: None)
  Receive Date: 20160811
  Receipt Date: 20160811
  Transmission Date: 20161109
  Serious: Yes (Hospitalization)
  Sender: FDA-Public Use
  Company Number: None

PATIENT
  Age: 71 Year
  Sex: Male
  Weight: 88.3 kg

DRUGS (2)
  1. NAPROXEN. [Suspect]
     Active Substance: NAPROXEN
     Indication: PAIN
     Dates: start: 20160625, end: 20160625
  2. LISINOPRIL. [Suspect]
     Active Substance: LISINOPRIL
     Indication: HYPERTENSION
     Route: 048
     Dates: start: 20000516, end: 20160630

REACTIONS (12)
  - Metabolic acidosis [None]
  - Sepsis [None]
  - Obstruction [None]
  - Acute kidney injury [None]
  - Hypophagia [None]
  - Haematemesis [None]
  - Electrocardiogram T wave peaked [None]
  - Pain in extremity [None]
  - Hypotension [None]
  - Renal mass [None]
  - Leukocytosis [None]
  - Prostatomegaly [None]

NARRATIVE: CASE EVENT DATE: 20160702
